FAERS Safety Report 5478096-8 (Version None)
Quarter: 2007Q4

REPORT INFORMATION
  Report Type: 
  Country: None (occurrence: None)
  Receive Date: 20071005
  Receipt Date: 20061009
  Transmission Date: 20080405
  Serious: No
  Sender: FDA-Public Use
  Company Number: US-BRISTOL-MYERS SQUIBB COMPANY-13535307

PATIENT
  Age: 93 Year
  Sex: Female

DRUGS (9)
  1. AVAPRO [Suspect]
     Indication: HYPERTENSION
  2. COUMADIN [Concomitant]
  3. LEVOTHYROXINE SODIUM [Concomitant]
  4. LANOXIN [Concomitant]
  5. IMDUR [Concomitant]
  6. ZOCOR [Concomitant]
  7. CATAPRES [Concomitant]
  8. NASAL SPRAY [Concomitant]
  9. LUMIGAN [Concomitant]

REACTIONS (1)
  - EPISTAXIS [None]
